FAERS Safety Report 16960714 (Version 1)
Quarter: 2019Q4

REPORT INFORMATION
  Report Type: Spontaneous
  Country: CO (occurrence: CO)
  Receive Date: 20191025
  Receipt Date: 20191025
  Transmission Date: 20200122
  Serious: Yes (Death, Other)
  Sender: FDA-Public Use
  Company Number: CO-BAXTER-2019BAX020962

PATIENT
  Age: 56 Year
  Sex: Male
  Weight: 69 kg

DRUGS (1)
  1. DIANEAL PD-2 WITH DEXTROSE [Suspect]
     Active Substance: CALCIUM CHLORIDE\DEXTROSE\MAGNESIUM CHLORIDE\SODIUM CHLORIDE\SODIUM LACTATE
     Indication: CHRONIC KIDNEY DISEASE
     Route: 033
     Dates: start: 20140625, end: 20191006

REACTIONS (4)
  - Delirium [Unknown]
  - Hyperglycaemia [Unknown]
  - Brain death [Fatal]
  - Cardio-respiratory arrest [Unknown]

NARRATIVE: CASE EVENT DATE: 20191005
